FAERS Safety Report 9324079 (Version 1)
Quarter: 2013Q2

REPORT INFORMATION
  Report Type: Report from Study
  Country: CA (occurrence: CA)
  Receive Date: 20130603
  Receipt Date: 20130603
  Transmission Date: 20140414
  Serious: Yes (Other)
  Sender: FDA-Public Use
  Company Number: PHHY2013CA052227

PATIENT
  Age: 68 Year
  Sex: Female

DRUGS (3)
  1. ACLASTA [Suspect]
     Indication: OSTEOPOROSIS
     Dosage: UNK UKN, UNK
     Route: 042
     Dates: start: 20100525
  2. ACLASTA [Suspect]
     Dosage: UNK UKN, UNK
     Dates: start: 20110608
  3. ACLASTA [Suspect]
     Dosage: UNK UKN, UNK
     Route: 042
     Dates: start: 20120613

REACTIONS (4)
  - Blood cholesterol decreased [Recovered/Resolved]
  - Low density lipoprotein decreased [Recovered/Resolved]
  - Red blood cell count decreased [Recovered/Resolved]
  - Mean cell volume increased [Recovered/Resolved]
